FAERS Safety Report 9106757 (Version 5)
Quarter: 2014Q1

REPORT INFORMATION
  Report Type: Spontaneous
  Country: US (occurrence: US)
  Receive Date: 20130221
  Receipt Date: 20140331
  Transmission Date: 20141002
  Serious: Yes (Other)
  Sender: FDA-Public Use
  Company Number: US-009507513-1302USA007339

PATIENT
  Sex: Male
  Weight: 80.27 kg

DRUGS (5)
  1. PROPECIA [Suspect]
     Indication: ANDROGENETIC ALOPECIA
     Dosage: 1 MG, QD
     Route: 048
     Dates: start: 20010404, end: 20090403
  2. PROSCAR [Suspect]
     Indication: ANDROGENETIC ALOPECIA
     Dosage: 5 MG, CUT INTO 4
     Route: 048
     Dates: start: 20040419, end: 20120727
  3. FINASTERIDE [Suspect]
     Indication: ANDROGENETIC ALOPECIA
     Dosage: 5 MG, UNK
     Route: 048
     Dates: start: 20080812, end: 20081005
  4. AFRIN SPRAY [Concomitant]
     Indication: HYPERSENSITIVITY
  5. CETIRIZINE HYDROCHLORIDE [Concomitant]
     Indication: HYPERSENSITIVITY

REACTIONS (20)
  - Mastectomy [Unknown]
  - Cognitive disorder [Not Recovered/Not Resolved]
  - Social avoidant behaviour [Unknown]
  - Anxiety [Unknown]
  - Urethritis noninfective [Unknown]
  - Tinea infection [Unknown]
  - Wrong technique in drug usage process [Unknown]
  - Blister [Recovered/Resolved]
  - Drug administration error [Unknown]
  - Genital herpes simplex [Unknown]
  - Depression [Unknown]
  - Sexual dysfunction [Not Recovered/Not Resolved]
  - Erectile dysfunction [Unknown]
  - Erectile dysfunction [Unknown]
  - Gynaecomastia [Unknown]
  - Breast mass [Unknown]
  - Breast lump removal [Unknown]
  - Breast mass [Unknown]
  - Breast pain [Unknown]
  - Breast swelling [Unknown]
